FAERS Safety Report 23836727 (Version 1)
Quarter: 2024Q2

REPORT INFORMATION
  Report Type: Spontaneous
  Country: FR (occurrence: None)
  Receive Date: 20240509
  Receipt Date: 20240509
  Transmission Date: 20240716
  Serious: Yes (Hospitalization, Disabling, Other)
  Sender: FDA-Public Use
  Company Number: 2024A103484

PATIENT
  Age: 66 Year
  Sex: Female
  Weight: 62 kg

DRUGS (9)
  1. ESOMEPRAZOLE [Suspect]
     Active Substance: ESOMEPRAZOLE
     Indication: Gastrooesophageal reflux disease
     Route: 048
     Dates: end: 20240105
  2. EBASTINE [Suspect]
     Active Substance: EBASTINE
     Indication: Product used for unknown indication
     Dosage: 5 MILLIGRAM, 1/DAY
     Route: 048
     Dates: end: 20231228
  3. RUPATADINE FUMARATE [Suspect]
     Active Substance: RUPATADINE FUMARATE
     Indication: Product used for unknown indication
     Route: 048
     Dates: end: 20231228
  4. ASPIRIN [Suspect]
     Active Substance: ASPIRIN
     Indication: Arteritis
     Route: 048
     Dates: end: 20231228
  5. PRAZEPAM [Suspect]
     Active Substance: PRAZEPAM
     Indication: Mixed anxiety and depressive disorder
     Route: 048
     Dates: end: 20231228
  6. AZELASTINE HYDROCHLORIDE [Suspect]
     Active Substance: AZELASTINE HYDROCHLORIDE
     Indication: Product used for unknown indication
     Dates: end: 20231228
  7. CHONDROITIN SULFATE (CHICKEN) [Concomitant]
     Active Substance: CHONDROITIN SULFATE (CHICKEN)
  8. GAVISCON [Concomitant]
     Active Substance: ALUMINUM HYDROXIDE\MAGNESIUM CARBONATE
  9. DOLIPRANE [Concomitant]
     Active Substance: ACETAMINOPHEN
     Route: 045

REACTIONS (2)
  - Subcutaneous haematoma [Recovered/Resolved with Sequelae]
  - Cerebral haematoma [Recovered/Resolved with Sequelae]

NARRATIVE: CASE EVENT DATE: 20231227
